FAERS Safety Report 24053208 (Version 1)
Quarter: 2024Q3

REPORT INFORMATION
  Report Type: Spontaneous
  Country: PL (occurrence: PL)
  Receive Date: 20240705
  Receipt Date: 20240705
  Transmission Date: 20241016
  Serious: Yes (Other)
  Sender: JOHNSON AND JOHNSON
  Company Number: None

PATIENT
  Sex: Male

DRUGS (2)
  1. RISPERDAL [Suspect]
     Active Substance: RISPERIDONE
     Indication: Schizophrenia
     Route: 048
  2. RISPERDAL [Suspect]
     Active Substance: RISPERIDONE
     Route: 048

REACTIONS (10)
  - Cardiac disorder [Unknown]
  - Oedema peripheral [Unknown]
  - Tooth disorder [Unknown]
  - Hunger [Unknown]
  - Ejaculation disorder [Unknown]
  - Weight increased [Unknown]
  - Headache [Unknown]
  - Varicose vein [Unknown]
  - Hair colour changes [Unknown]
  - Hypoaesthesia [Unknown]
